FAERS Safety Report 5824323-4 (Version None)
Quarter: 2008Q3

REPORT INFORMATION
  Report Type: 
  Country: None (occurrence: None)
  Receive Date: 20080728
  Receipt Date: 20080717
  Transmission Date: 20090109
  Serious: Yes (Other)
  Sender: FDA-Public Use
  Company Number: JP-JNJFOC-20080703275

PATIENT
  Age: 84 Year
  Sex: Male

DRUGS (2)
  1. ITRIZOLE [Suspect]
     Indication: PULMONARY MYCOSIS
     Route: 041
  2. FLIVAS [Suspect]
     Indication: DRUG USE FOR UNKNOWN INDICATION
     Route: 048

REACTIONS (1)
  - CATARACT [None]
